FAERS Safety Report 9777676 (Version 2)
Quarter: 2013Q4

REPORT INFORMATION
  Report Type: Report from Study
  Country: US (occurrence: US)
  Receive Date: 20131223
  Receipt Date: 20131223
  Transmission Date: 20140711
  Serious: Yes (Hospitalization)
  Sender: FDA-Public Use
  Company Number: US-ROCHE-1317751

PATIENT
  Sex: Female

DRUGS (7)
  1. CELLCEPT [Suspect]
     Indication: PRODUCT USED FOR UNKNOWN INDICATION
     Route: 065
  2. PEGASYS [Suspect]
     Indication: PRODUCT USED FOR UNKNOWN INDICATION
     Route: 065
  3. COPEGUS [Suspect]
     Indication: PRODUCT USED FOR UNKNOWN INDICATION
     Route: 065
  4. ASPIRIN [Concomitant]
  5. PLAVIX [Concomitant]
  6. PROGRAFT [Concomitant]
  7. FLORINEF [Concomitant]

REACTIONS (3)
  - Liver disorder [Unknown]
  - Blood bilirubin increased [Unknown]
  - Hepatitis C [Unknown]
